FAERS Safety Report 5410375-2 (Version None)
Quarter: 2007Q3

REPORT INFORMATION
  Report Type: 
  Country: None (occurrence: None)
  Receive Date: 20070808
  Receipt Date: 20070801
  Transmission Date: 20080115
  Serious: Yes (Life-Threatening)
  Sender: FDA-Public Use
  Company Number: E2020-01318-SPO-JP

PATIENT
  Age: 85 Year
  Sex: Female

DRUGS (11)
  1. ARICEPT [Suspect]
     Indication: DEMENTIA ALZHEIMER'S TYPE
     Dosage: 3 MG, 1 IN 1 D; ORAL
     Route: 048
     Dates: start: 20070530, end: 20070530
  2. MINOCYCLINE HCL [Concomitant]
  3. ASLDAM (FLAVINE ADENINE DINUCLEOTIDE) [Concomitant]
  4. ASCORBIC ACID [Concomitant]
  5. BUSPON (BUSPIRONE HYDROCHLORIDE) [Concomitant]
  6. KN-3B (OSMOSAL) [Concomitant]
  7. NORNICICAMIN (VITAMEDIN INTRAVENOUS) [Concomitant]
  8. RECOGNAN S (CITICOLINE) [Concomitant]
  9. SOLCOSERYL (BLOOD, CALF, DEPROT., LMW PORTION) [Concomitant]
  10. LACB R (BIFIDOBACTERIUM) [Concomitant]
  11. RIIDAI A 9BERBERINE) [Concomitant]

REACTIONS (7)
  - ANOREXIA [None]
  - BLOOD GLUCOSE INCREASED [None]
  - CONTUSION [None]
  - DIARRHOEA [None]
  - GASTROENTERITIS BACTERIAL [None]
  - HEART RATE IRREGULAR [None]
  - HYPOGLYCAEMIC COMA [None]
